FAERS Safety Report 21902969 (Version 1)
Quarter: 2023Q1

REPORT INFORMATION
  Report Type: Spontaneous
  Country: US (occurrence: US)
  Receive Date: 20230124
  Receipt Date: 20230124
  Transmission Date: 20230418
  Serious: No
  Sender: FDA-Public Use
  Company Number: US-LEO Pharma-348614

PATIENT
  Sex: Female

DRUGS (8)
  1. ADBRY [Suspect]
     Active Substance: TRALOKINUMAB-LDRM
     Indication: Dermatitis allergic
     Dosage: DOSAGE : 4 INJECTIONS FOR THE INITIAL DOSE THEN AT 2 INJECTIONS EVERY OTHER WEEK SUBCUTANEOUSLY
     Route: 058
     Dates: start: 202210
  2. ADBRY [Suspect]
     Active Substance: TRALOKINUMAB-LDRM
     Indication: Dermatitis allergic
     Dosage: DOSAGE : 4 INJECTIONS FOR THE INITIAL DOSE THEN AT 2 INJECTIONS EVERY OTHER WEEK SUBCUTANEOUSLY
     Route: 058
     Dates: start: 202210
  3. ADBRY [Suspect]
     Active Substance: TRALOKINUMAB-LDRM
     Indication: Dermatitis allergic
     Dosage: DOSAGE : 4 INJECTIONS FOR THE INITIAL DOSE THEN AT 2 INJECTIONS EVERY OTHER WEEK SUBCUTANEOUSLY
     Route: 058
     Dates: start: 202210
  4. ADBRY [Suspect]
     Active Substance: TRALOKINUMAB-LDRM
     Indication: Dermatitis allergic
     Dosage: DOSAGE : 4 INJECTIONS FOR THE INITIAL DOSE THEN AT 2 INJECTIONS EVERY OTHER WEEK SUBCUTANEOUSLY
     Route: 058
     Dates: start: 202210
  5. ADBRY [Suspect]
     Active Substance: TRALOKINUMAB-LDRM
     Indication: Dermatitis allergic
     Dosage: DOSAGE : 4 INJECTIONS FOR THE INITIAL DOSE THEN AT 2 INJECTIONS EVERY OTHER WEEK SUBCUTANEOUSLY
     Route: 058
     Dates: start: 202210
  6. ADBRY [Suspect]
     Active Substance: TRALOKINUMAB-LDRM
     Indication: Dermatitis allergic
     Dosage: DOSAGE : 4 INJECTIONS FOR THE INITIAL DOSE THEN AT 2 INJECTIONS EVERY OTHER WEEK SUBCUTANEOUSLY
     Route: 058
     Dates: start: 202210
  7. ADBRY [Suspect]
     Active Substance: TRALOKINUMAB-LDRM
     Indication: Dermatitis allergic
     Dosage: DOSAGE : 4 INJECTIONS FOR THE INITIAL DOSE THEN AT 2 INJECTIONS EVERY OTHER WEEK SUBCUTANEOUSLY
     Route: 058
     Dates: start: 202210
  8. ADBRY [Suspect]
     Active Substance: TRALOKINUMAB-LDRM
     Indication: Dermatitis allergic
     Dosage: DOSAGE : 4 INJECTIONS FOR THE INITIAL DOSE THEN AT 2 INJECTIONS EVERY OTHER WEEK SUBCUTANEOUSLY
     Route: 058
     Dates: start: 202210

REACTIONS (2)
  - Skin mass [Not Recovered/Not Resolved]
  - Pruritus [Not Recovered/Not Resolved]
